FAERS Safety Report 12957777 (Version 1)
Quarter: 2016Q4

REPORT INFORMATION
  Report Type: Spontaneous
  Country: GB (occurrence: GB)
  Receive Date: 20161118
  Receipt Date: 20161118
  Transmission Date: 20170207
  Serious: Yes (Hospitalization)
  Sender: FDA-Public Use
  Company Number: GB-ALLERGAN-1676373US

PATIENT
  Age: 53 Year
  Sex: Female
  Weight: 63.4 kg

DRUGS (1)
  1. BOTOX [Suspect]
     Active Substance: ONABOTULINUMTOXINA
     Indication: SKIN COSMETIC PROCEDURE
     Dosage: UNK UNK, SINGLE
     Route: 051
     Dates: start: 20161027, end: 20161027

REACTIONS (10)
  - Hypersensitivity [Unknown]
  - Nausea [Recovered/Resolved with Sequelae]
  - Appendicitis [Recovered/Resolved]
  - Dyspnoea [Unknown]
  - Headache [Not Recovered/Not Resolved]
  - Abdominal pain [Recovered/Resolved]
  - Malaise [Unknown]
  - Asthenopia [Not Recovered/Not Resolved]
  - Chills [Unknown]
  - Dizziness [Not Recovered/Not Resolved]

NARRATIVE: CASE EVENT DATE: 20161030
